FAERS Safety Report 16839296 (Version 3)
Quarter: 2019Q4

REPORT INFORMATION
  Report Type: Spontaneous
  Country: FR (occurrence: FR)
  Receive Date: 20190923
  Receipt Date: 20191230
  Transmission Date: 20200122
  Serious: Yes (Hospitalization, Other)
  Sender: FDA-Public Use
  Company Number: FR-JNJFOC-20190926846

PATIENT
  Age: 60 Year
  Sex: Male

DRUGS (6)
  1. OMEPRAZOLE. [Concomitant]
     Active Substance: OMEPRAZOLE
     Dosage: 20 MG, QD
  2. PARACETAMOL/ CAFFEINE [Concomitant]
     Active Substance: ACETAMINOPHEN\CAFFEINE
     Dosage: UNK UNK, PRN
  3. PROCORALAN [Concomitant]
     Active Substance: IVABRADINE
     Dosage: 5 MG, BID
  4. KARDEGIC [Concomitant]
     Active Substance: ASPIRIN DL-LYSINE
     Dosage: 160 MG, QD
  5. RIVAROXABAN [Suspect]
     Active Substance: RIVAROXABAN
     Route: 048
  6. RIVAROXABAN [Suspect]
     Active Substance: RIVAROXABAN
     Indication: DEEP VEIN THROMBOSIS
     Dosage: 20 MG, QD
     Route: 048
     Dates: start: 201906

REACTIONS (4)
  - Lung carcinoma cell type unspecified stage IV [Unknown]
  - Deep vein thrombosis [Unknown]
  - Metastases to central nervous system [Unknown]
  - Pulmonary embolism [Unknown]

NARRATIVE: CASE EVENT DATE: 2019
